FAERS Safety Report 6431420-1 (Version None)
Quarter: 2009Q4

REPORT INFORMATION
  Report Type: 
  Country: None (occurrence: None)
  Receive Date: 20091106
  Receipt Date: 20091102
  Transmission Date: 20100525
  Serious: Yes (Other)
  Sender: FDA-Public Use
  Company Number: PHHY2009DE41567

PATIENT
  Sex: Female
  Weight: 63 kg

DRUGS (2)
  1. CGS 20267 T30748+ [Suspect]
     Indication: BREAST CANCER
     Dosage: 2.5 MG DAILY
     Route: 048
     Dates: start: 20090202, end: 20090615
  2. RADIOTHERAPY [Concomitant]
     Dosage: UNK
     Dates: start: 20081217, end: 20090303

REACTIONS (2)
  - VISUAL IMPAIRMENT [None]
  - VOMITING [None]
